FAERS Safety Report 6128768-7 (Version None)
Quarter: 2009Q1

REPORT INFORMATION
  Report Type: 
  Country: None (occurrence: None)
  Receive Date: 20090320
  Receipt Date: 20090311
  Transmission Date: 20090719
  Serious: Yes (Other)
  Sender: FDA-Public Use
  Company Number: 1000005280

PATIENT

DRUGS (2)
  1. ESCITALOPRAM [Suspect]
     Dosage: TRANSPLACENTAL
     Route: 064
  2. SUBUTEX [Suspect]
     Dosage: TRANSPLACENTAL
     Route: 064

REACTIONS (2)
  - DRUG WITHDRAWAL SYNDROME NEONATAL [None]
  - MATERNAL DRUGS AFFECTING FOETUS [None]
